FAERS Safety Report 15462284 (Version 1)
Quarter: 2018Q4

REPORT INFORMATION
  Report Type: Spontaneous
  Country: FR (occurrence: FR)
  Receive Date: 20181003
  Receipt Date: 20181003
  Transmission Date: 20190204
  Serious: Yes (Hospitalization)
  Sender: FDA-Public Use
  Company Number: FR-INDIVIOR LIMITED-INDV-114326-2017

PATIENT
  Age: 35 Year
  Sex: Female

DRUGS (4)
  1. SUBUTEX [Suspect]
     Active Substance: BUPRENORPHINE HYDROCHLORIDE
     Indication: PRODUCT USED FOR UNKNOWN INDICATION
     Dosage: UNK
     Route: 042
  2. TREVICTA [Concomitant]
     Active Substance: PALIPERIDONE PALMITATE
     Indication: PRODUCT USED FOR UNKNOWN INDICATION
     Dosage: 525MG, EVERY THREE MONTHS
     Route: 030
  3. LEXOMIL [Concomitant]
     Active Substance: BROMAZEPAM
     Indication: PRODUCT USED FOR UNKNOWN INDICATION
     Dosage: 3 PER DAY
     Route: 065
  4. METHADONE [Concomitant]
     Active Substance: METHADONE HYDROCHLORIDE
     Indication: PRODUCT USED FOR UNKNOWN INDICATION
     Dosage: 100MG IN THE MORNING
     Route: 065

REACTIONS (8)
  - Coma [Recovered/Resolved]
  - Drug diversion [Unknown]
  - Escherichia infection [Unknown]
  - Product use issue [Unknown]
  - Toxicity to various agents [Unknown]
  - Stress cardiomyopathy [Not Recovered/Not Resolved]
  - Overdose [Unknown]
  - Substance dependence [Unknown]

NARRATIVE: CASE EVENT DATE: 201706
